FAERS Safety Report 11566189 (Version 1)
Quarter: 2015Q3

REPORT INFORMATION
  Report Type: Spontaneous
  Country: US (occurrence: US)
  Receive Date: 20150916
  Receipt Date: 20150916
  Transmission Date: 20151125
  Serious: No
  Sender: FDA-Public Use
  Company Number: US-ELI_LILLY_AND_COMPANY-US200905005723

PATIENT
  Age: 82 Year
  Sex: Female

DRUGS (3)
  1. CALCIUM D-500 [Concomitant]
     Dosage: 1 D/F, 2/D
  2. FORTEO [Suspect]
     Active Substance: TERIPARATIDE
     Dosage: 20 UG, UNK
     Dates: start: 20090311, end: 20090522
  3. FUROSEMIDE. [Concomitant]
     Active Substance: FUROSEMIDE
     Dosage: 60 MG, DAILY (1/D)

REACTIONS (1)
  - Oesophageal spasm [Unknown]

NARRATIVE: CASE EVENT DATE: 20090518
